FAERS Safety Report 6317521-7 (Version None)
Quarter: 2009Q3

REPORT INFORMATION
  Report Type: 
  Country: None (occurrence: None)
  Receive Date: 20090820
  Receipt Date: 20090820
  Transmission Date: 20100115
  Serious: No
  Sender: FDA-Public Use
  Company Number: None

PATIENT
  Age: 47 Year
  Sex: Female

DRUGS (1)
  1. OCTREOTIDE ACETATE [Suspect]
     Indication: CARCINOID SYNDROME
     Dosage: 50MCG IV
     Route: 042
     Dates: start: 20090802

REACTIONS (4)
  - ABDOMINAL PAIN [None]
  - GASTROINTESTINAL DISORDER [None]
  - HEADACHE [None]
  - VISION BLURRED [None]
